FAERS Safety Report 21719327 (Version 1)
Quarter: 2022Q4

REPORT INFORMATION
  Report Type: Spontaneous
  Country: ES (occurrence: ES)
  Receive Date: 20221213
  Receipt Date: 20221213
  Transmission Date: 20230113
  Serious: Yes (Hospitalization, Other)
  Sender: FDA-Public Use
  Company Number: ES-CHEPLA-2022011996

PATIENT
  Age: 42 Year
  Sex: Male

DRUGS (4)
  1. CLONAZEPAM [Interacting]
     Active Substance: CLONAZEPAM
     Dosage: 1-1-1
  2. LITHIUM CARBONATE [Interacting]
     Active Substance: LITHIUM CARBONATE
     Dosage: 400-200-400 MG?DAILY DOSE: 1000 MILLIGRAM
  3. VALPROIC ACID [Interacting]
     Active Substance: VALPROIC ACID
     Dosage: 500-500-500 MG
  4. OLANZAPINE [Interacting]
     Active Substance: OLANZAPINE
     Dosage: 10-10-10 MG

REACTIONS (1)
  - Toxicity to various agents [Recovered/Resolved with Sequelae]
